FAERS Safety Report 12239741 (Version 3)
Quarter: 2018Q2

REPORT INFORMATION
  Report Type: Spontaneous
  Country: US (occurrence: US)
  Receive Date: 20160405
  Receipt Date: 20180403
  Transmission Date: 20180711
  Serious: No
  Sender: FDA-Public Use
  Company Number: US-ROCHE-1640384

PATIENT
  Sex: Female

DRUGS (7)
  1. ERIVEDGE [Suspect]
     Active Substance: VISMODEGIB
     Route: 048
     Dates: start: 20161212
  2. GABAPENTIN. [Concomitant]
     Active Substance: GABAPENTIN
  3. CYMBALTA [Concomitant]
     Active Substance: DULOXETINE HYDROCHLORIDE
  4. METHADONE [Concomitant]
     Active Substance: METHADONE HYDROCHLORIDE
  5. ERIVEDGE [Suspect]
     Active Substance: VISMODEGIB
     Indication: BASAL CELL CARCINOMA
     Route: 048
     Dates: start: 20150904
  6. ERIVEDGE [Suspect]
     Active Substance: VISMODEGIB
     Indication: PLASMA CELL MYELOMA
     Route: 048
     Dates: start: 201509
  7. LOSARTAN. [Concomitant]
     Active Substance: LOSARTAN

REACTIONS (6)
  - Headache [Unknown]
  - Muscle spasms [Unknown]
  - Diarrhoea [Unknown]
  - Arthralgia [Unknown]
  - Ageusia [Unknown]
  - Drug effect delayed [Unknown]
